FAERS Safety Report 21092963 (Version 1)
Quarter: 2022Q3

REPORT INFORMATION
  Report Type: Spontaneous
  Country: CN (occurrence: CN)
  Receive Date: 20220718
  Receipt Date: 20220718
  Transmission Date: 20221026
  Serious: Yes (Other)
  Sender: FDA-Public Use
  Company Number: None

PATIENT
  Age: 49 Year
  Sex: Female
  Weight: 73 kg

DRUGS (2)
  1. CYCLOPHOSPHAMIDE [Suspect]
     Active Substance: CYCLOPHOSPHAMIDE
     Indication: Neoplasm malignant
     Dosage: 1 G, QD, (DOSAGE FORM: POWDER INJECTION), CYCLOPHOSPHAMIDE 1G + 0.9% SODIUM CHLORIDE 30ML
     Route: 041
     Dates: start: 20220708, end: 20220709
  2. SODIUM CHLORIDE [Suspect]
     Active Substance: SODIUM CHLORIDE
     Indication: Medication dilution
     Dosage: 30 ML, QD, (DOSAGE FORM: INJECTION), CYCLOPHOSPHAMIDE 1G + 0.9% SODIUM CHLORIDE 30ML
     Route: 041
     Dates: start: 20220708, end: 20220709

REACTIONS (2)
  - Myelosuppression [Recovering/Resolving]
  - Hepatic function abnormal [Recovering/Resolving]

NARRATIVE: CASE EVENT DATE: 20220711
